FAERS Safety Report 5670269-4 (Version None)
Quarter: 2008Q1

REPORT INFORMATION
  Report Type: 
  Country: None (occurrence: None)
  Receive Date: 20080318
  Receipt Date: 20080313
  Transmission Date: 20080703
  Serious: Yes (Hospitalization)
  Sender: FDA-Public Use
  Company Number: AU-BRISTOL-MYERS SQUIBB COMPANY-14115588

PATIENT
  Age: 75 Year
  Sex: Female

DRUGS (4)
  1. AVAPRO [Suspect]
     Indication: ESSENTIAL HYPERTENSION
     Route: 048
  2. EPILIM [Suspect]
     Indication: AFFECTIVE DISORDER
     Dosage: STARTED AS 500MG PER DAY.
     Route: 048
  3. ATENOLOL [Concomitant]
     Route: 048
  4. ZANIDIP [Concomitant]
     Route: 048

REACTIONS (1)
  - HYPONATRAEMIA [None]
